FAERS Safety Report 4539616-0 (Version None)
Quarter: 2004Q4

REPORT INFORMATION
  Report Type: 
  Country: None (occurrence: None)
  Receive Date: 20041228
  Receipt Date: 20041209
  Transmission Date: 20050328
  Serious: Yes (Life-Threatening)
  Sender: FDA-Public Use
  Company Number: PHBS2004CA16906

PATIENT
  Sex: Female

DRUGS (2)
  1. SLOW-K [Suspect]
     Route: 048
     Dates: start: 20041118
  2. CLARITIN [Concomitant]

REACTIONS (3)
  - ANAPHYLACTIC SHOCK [None]
  - OROPHARYNGEAL SWELLING [None]
  - RASH [None]
